FAERS Safety Report 6834414-7 (Version None)
Quarter: 2010Q3

REPORT INFORMATION
  Report Type: 
  Country: None (occurrence: None)
  Receive Date: 20100712
  Receipt Date: 20070415
  Transmission Date: 20110219
  Serious: No
  Sender: FDA-Public Use
  Company Number: US-PFIZER INC-2007030730

PATIENT
  Age: 60 Year
  Sex: Male
  Weight: 88.636 kg

DRUGS (3)
  1. CHANTIX [Suspect]
     Indication: SMOKING CESSATION THERAPY
     Dates: start: 20070415
  2. LISINOPRIL [Concomitant]
     Route: 048
  3. PRAVASTATIN [Concomitant]
     Route: 048

REACTIONS (1)
  - MUSCLE SPASMS [None]
